FAERS Safety Report 5891854-0 (Version None)
Quarter: 2008Q3

REPORT INFORMATION
  Report Type: 
  Country: None (occurrence: None)
  Receive Date: 20080918
  Receipt Date: 20080918
  Transmission Date: 20090109
  Serious: Yes (Hospitalization)
  Sender: FDA-Public Use
  Company Number: None

PATIENT
  Sex: Male

DRUGS (3)
  1. WARFARIN SODIUM [Suspect]
     Indication: CEREBROVASCULAR ACCIDENT PROPHYLAXIS
     Dosage: 5 MG DAILY PO
     Route: 048
  2. CARDIZEM [Concomitant]
  3. VYTORIN [Concomitant]

REACTIONS (6)
  - ASTHENIA [None]
  - EPISTAXIS [None]
  - GASTROINTESTINAL HAEMORRHAGE [None]
  - HEART RATE IRREGULAR [None]
  - INTERNATIONAL NORMALISED RATIO INCREASED [None]
  - SYNCOPE [None]
